FAERS Safety Report 10089456 (Version 1)
Quarter: 2014Q2

REPORT INFORMATION
  Report Type: Spontaneous
  Country: GB (occurrence: None)
  Receive Date: 20140417
  Receipt Date: 20140417
  Transmission Date: 20141212
  Serious: Yes (Other)
  Sender: FDA-Public Use
  Company Number: AUR-APL-2014-04506

PATIENT
  Age: 29 Year
  Sex: Female

DRUGS (6)
  1. ALENDRONIC ACID [Suspect]
     Indication: PROPHYLAXIS
  2. ALENDRONIC ACID [Suspect]
     Indication: STEROID THERAPY
  3. AZATHIOPRINE (AZATHIOPRINE) [Concomitant]
  4. CALCICHEW (CALCIUM CARBONATE) [Concomitant]
  5. MEZAVANT XL (MESALAZINE) [Concomitant]
  6. OMEPRAZOLE (OMEPRAZOLE) [Concomitant]

REACTIONS (3)
  - Hypoplastic left heart syndrome [None]
  - Abortion induced [None]
  - Exposure during pregnancy [None]
